APPROVED DRUG PRODUCT: METHYLPHENIDATE HYDROCHLORIDE
Active Ingredient: METHYLPHENIDATE HYDROCHLORIDE
Strength: 20MG
Dosage Form/Route: CAPSULE, EXTENDED RELEASE;ORAL
Application: A077707 | Product #002 | TE Code: AB2
Applicant: TEVA PHARMACEUTICALS USA
Approved: Jul 19, 2012 | RLD: No | RS: No | Type: RX